FAERS Safety Report 4280409-X (Version None)
Quarter: 2004Q1

REPORT INFORMATION
  Report Type: 
  Country: None (occurrence: None)
  Receive Date: 20040127
  Receipt Date: 20040120
  Transmission Date: 20041129
  Serious: Yes (Other)
  Sender: FDA-Public Use
  Company Number: 2004195361DE

PATIENT
  Age: 56 Year
  Sex: Female
  Weight: 58 kg

DRUGS (2)
  1. EPIRUBICIN [Suspect]
     Indication: BREAST CANCER
     Dosage: 145 MG, IV
     Route: 042
     Dates: start: 20031230, end: 20031230
  2. CYCLOPHOSPHAMIDE [Suspect]
     Indication: BREAST CANCER
     Dosage: 945 MG, IV
     Route: 042
     Dates: start: 20031230, end: 20031230

REACTIONS (3)
  - AXILLARY VEIN THROMBOSIS [None]
  - CATHETER RELATED COMPLICATION [None]
  - SUBCLAVIAN VEIN THROMBOSIS [None]
